FAERS Safety Report 23406677 (Version 1)
Quarter: 2024Q1

REPORT INFORMATION
  Report Type: Spontaneous
  Country: US (occurrence: US)
  Receive Date: 20240116
  Receipt Date: 20240116
  Transmission Date: 20240409
  Serious: Yes (Death)
  Sender: FDA-Public Use
  Company Number: US-BAYER-2024A007348

PATIENT
  Sex: Male

DRUGS (1)
  1. CIPRO [Suspect]
     Active Substance: CIPROFLOXACIN HYDROCHLORIDE
     Route: 042

REACTIONS (1)
  - Illness [Fatal]
